FAERS Safety Report 7729271-0 (Version None)
Quarter: 2011Q3

REPORT INFORMATION
  Report Type: 
  Country: None (occurrence: None)
  Receive Date: 20110906
  Receipt Date: 20110906
  Transmission Date: 20111222
  Serious: Yes (Other)
  Sender: FDA-Public Use
  Company Number: US-PFIZER INC-2011205655

PATIENT
  Sex: Female

DRUGS (6)
  1. OXYCODONE [Concomitant]
     Indication: PAIN
     Dosage: UNK
  2. CHANTIX [Suspect]
     Dosage: UNK
     Dates: start: 20110801
  3. PREMPRO [Concomitant]
     Indication: MENOPAUSE
     Dosage: UNK
  4. XANAX [Concomitant]
     Indication: PANIC ATTACK
     Dosage: UNK
  5. ZYVOX [Concomitant]
     Dosage: UNK, 3X/DAY
  6. KLONOPIN [Concomitant]
     Dosage: UNK

REACTIONS (6)
  - DYSPNOEA [None]
  - MALAISE [None]
  - DIZZINESS [None]
  - HYPERHIDROSIS [None]
  - COLD SWEAT [None]
  - NAUSEA [None]
